FAERS Safety Report 21079152 (Version 1)
Quarter: 2022Q3

REPORT INFORMATION
  Report Type: Spontaneous
  Country: GB (occurrence: GB)
  Receive Date: 20220714
  Receipt Date: 20220714
  Transmission Date: 20221027
  Serious: Yes (Life-Threatening, Hospitalization)
  Sender: FDA-Public Use
  Company Number: GB-STRIDES ARCOLAB LIMITED-2022SP008745

PATIENT
  Age: 25 Year
  Sex: Male

DRUGS (1)
  1. COLCHICINE [Suspect]
     Active Substance: COLCHICINE
     Indication: Product used for unknown indication
     Dosage: 25 MILLIGRAM, UNKNOWN
     Route: 048

REACTIONS (12)
  - Pneumothorax [Unknown]
  - Myelosuppression [Recovered/Resolved]
  - Pneumonia bacterial [Unknown]
  - Pneumonia fungal [Unknown]
  - Metabolic acidosis [Unknown]
  - Vomiting [Unknown]
  - Abdominal pain [Unknown]
  - Rhabdomyolysis [Unknown]
  - Alopecia [Unknown]
  - Pancytopenia [Unknown]
  - Intentional overdose [Unknown]
  - Toxicity to various agents [Unknown]
